FAERS Safety Report 19091953 (Version 1)
Quarter: 2021Q2

REPORT INFORMATION
  Report Type: Spontaneous
  Country: US (occurrence: US)
  Receive Date: 20210402
  Receipt Date: 20210402
  Transmission Date: 20210717
  Serious: Yes (Other)
  Sender: FDA-Public Use
  Company Number: None

PATIENT
  Age: 41 Year
  Sex: Male
  Weight: 104.85 kg

DRUGS (4)
  1. FYCOMPA [Suspect]
     Active Substance: PERAMPANEL
     Indication: SEIZURE
     Dosage: ?          QUANTITY:1 TABLET(S);?
     Route: 048
     Dates: start: 20210323, end: 20210402
  2. KEPPRA [Concomitant]
     Active Substance: LEVETIRACETAM
  3. LISINOPRIL. [Concomitant]
     Active Substance: LISINOPRIL
  4. DILANTIN [Concomitant]
     Active Substance: PHENYTOIN

REACTIONS (5)
  - Frustration tolerance decreased [None]
  - Irritability [None]
  - Anger [None]
  - Fear [None]
  - Abnormal behaviour [None]

NARRATIVE: CASE EVENT DATE: 20210401
